FAERS Safety Report 25374034 (Version 1)
Quarter: 2025Q2

REPORT INFORMATION
  Report Type: Spontaneous
  Country: US (occurrence: None)
  Receive Date: 20250528
  Receipt Date: 20250528
  Transmission Date: 20250717
  Serious: Yes (Death)
  Sender: FDA-CTU
  Company Number: None

PATIENT
  Age: 60 Year
  Sex: Female

DRUGS (1)
  1. POMALYST [Suspect]
     Active Substance: POMALIDOMIDE

REACTIONS (3)
  - Malaise [None]
  - Blood potassium abnormal [None]
  - Cardiopulmonary failure [None]

NARRATIVE: CASE EVENT DATE: 20250517
